FAERS Safety Report 7810767-8 (Version None)
Quarter: 2011Q4

REPORT INFORMATION
  Report Type: 
  Country: None (occurrence: None)
  Receive Date: 20111006
  Receipt Date: 20110920
  Transmission Date: 20120403
  Serious: Yes (Life-Threatening, Hospitalization)
  Sender: FDA-Public Use
  Company Number: 2011MA014191

PATIENT
  Age: 47 Year
  Sex: Female

DRUGS (9)
  1. FLUOXETINE [Concomitant]
  2. ISOSORBIDE DINITRATE [Concomitant]
  3. LORAZEPAM [Concomitant]
  4. HYDROCHLOROTHIAZIDE [Concomitant]
  5. MONONITRATE [Concomitant]
  6. ZOLPIDEM [Concomitant]
  7. LISINOPRIL [Suspect]
     Indication: PRODUCT USED FOR UNKNOWN INDICATION
     Dosage: 10 MG, QD
  8. LABETALOL HCL [Concomitant]
  9. VERAPAMIL HYDROCHLORIDE [Suspect]
     Indication: PRODUCT USED FOR UNKNOWN INDICATION
     Dosage: 60 MG, Q6H, PO
     Route: 048

REACTIONS (7)
  - MYOCARDITIS [None]
  - ARTERIOSPASM CORONARY [None]
  - HYPERTENSION [None]
  - ANXIETY [None]
  - ACUTE MYOCARDIAL INFARCTION [None]
  - CARDIAC MURMUR [None]
  - NO THERAPEUTIC RESPONSE [None]
